FAERS Safety Report 7502722-2 (Version None)
Quarter: 2011Q2

REPORT INFORMATION
  Report Type: 
  Country: None (occurrence: None)
  Receive Date: 20110525
  Receipt Date: 20100802
  Transmission Date: 20111010
  Serious: No
  Sender: FDA-Public Use
  Company Number: US-MYLANLABS-2010S1014171

PATIENT
  Age: 79 Year
  Sex: Female

DRUGS (6)
  1. GLIPIZIDE AND METFORMIN HYDROCHLORIDE [Suspect]
     Route: 048
     Dates: start: 20100721
  2. AMLODIPINE [Concomitant]
  3. ENALAPRIL MALEATE [Concomitant]
  4. LEXAPRO [Concomitant]
  5. GLIPIZIDE AND METFORMIN HYDROCHLORIDE [Suspect]
     Indication: DIABETES MELLITUS
     Route: 048
     Dates: start: 20100721
  6. WELLBUTRIN [Concomitant]

REACTIONS (4)
  - DIARRHOEA [None]
  - ABDOMINAL DISCOMFORT [None]
  - DYSGEUSIA [None]
  - HEADACHE [None]
